FAERS Safety Report 5844317-2 (Version None)
Quarter: 2008Q3

REPORT INFORMATION
  Report Type: 
  Country: None (occurrence: None)
  Receive Date: 20080813
  Receipt Date: 20080806
  Transmission Date: 20090109
  Serious: Yes (Hospitalization, Other)
  Sender: FDA-Public Use
  Company Number: US-BOEHRINGER INGELHEIM GMBH, GERMANY-2008-BP-12466BP

PATIENT
  Age: 47 Year
  Sex: Male

DRUGS (5)
  1. APTIVUS/RITONAVIR CAPSULES [Suspect]
     Indication: HIV INFECTION
     Dates: start: 20070901
  2. RALTEGRAVIR [Concomitant]
     Indication: HIV INFECTION
     Dates: start: 20070901
  3. MARAVIROC [Concomitant]
     Indication: HIV INFECTION
     Dates: start: 20070901
  4. TENOFOVIR [Concomitant]
     Indication: HIV INFECTION
     Dates: start: 20070901
  5. EMTRICITABINE [Concomitant]
     Indication: HIV INFECTION
     Dates: start: 20070901

REACTIONS (7)
  - AIDS DEMENTIA COMPLEX [None]
  - CENTRAL NERVOUS SYSTEM INFLAMMATION [None]
  - CEREBELLAR ATAXIA [None]
  - DEMENTIA [None]
  - GRAND MAL CONVULSION [None]
  - IMMUNE RECONSTITUTION SYNDROME [None]
  - VIRAL LOAD INCREASED [None]
